FAERS Safety Report 16564320 (Version 2)
Quarter: 2019Q3

REPORT INFORMATION
  Report Type: Spontaneous
  Country: None (occurrence: SI)
  Receive Date: 20190712
  Receipt Date: 20190729
  Transmission Date: 20191004
  Serious: Yes (Hospitalization)
  Sender: FDA-Public Use
  Company Number: SI-ORION CORPORATION ORION PHARMA-ENTC2019-0172

PATIENT
  Age: 69 Year
  Sex: Male

DRUGS (8)
  1. STALEVO [Suspect]
     Active Substance: CARBIDOPA\ENTACAPONE\LEVODOPA
     Indication: PARKINSON^S DISEASE
     Dosage: QHS: EVERY NIGHT AT BEDTIME
     Route: 048
  2. CARBIDOPA + L-DOPA [Suspect]
     Active Substance: CARBIDOPA\LEVODOPA
     Dosage: 9 ML MORNING, 3.5 ML/HR FOR DAY, 2.0 ML BOLUS PRN
     Route: 065
  3. CARBIDOPA + L-DOPA [Suspect]
     Active Substance: CARBIDOPA\LEVODOPA
     Route: 050
  4. CARBIDOPA + L-DOPA [Suspect]
     Active Substance: CARBIDOPA\LEVODOPA
     Indication: PARKINSON^S DISEASE
     Dosage: 9 ML MORNING, 3.5 ML/HR FOR 16 HOURS IN DAY, 2.5 ML BOLUS IF NEEDED, BID, TOTAL OF 1440 MG
     Route: 065
  5. MADOPAR [Suspect]
     Active Substance: BENSERAZIDE HYDROCHLORIDE\LEVODOPA
     Indication: PARKINSON^S DISEASE
     Dosage: STRENGTH: 100 MG LEVODOPA /25 MG BENSERAZIDE HYDROCHLORIDE; AS NECESSARY
     Route: 048
  6. PANTOPRAZOLE [Concomitant]
     Active Substance: PANTOPRAZOLE
     Route: 065
  7. QUETIAPINE. [Concomitant]
     Active Substance: QUETIAPINE
     Route: 065
  8. FLUDROCORTISONE [Concomitant]
     Active Substance: FLUDROCORTISONE
     Route: 065

REACTIONS (5)
  - Oromandibular dystonia [Recovering/Resolving]
  - Weight decreased [Unknown]
  - Dyskinesia [Recovering/Resolving]
  - Protrusion tongue [Recovering/Resolving]
  - Dysphagia [Recovering/Resolving]
